FAERS Safety Report 9515654 (Version 1)
Quarter: 2013Q1

REPORT INFORMATION
  Report Type: Spontaneous
  Country: US (occurrence: None)
  Receive Date: 20130305
  Receipt Date: 20130305
  Transmission Date: 20140127
  Serious: Yes (Other)
  Sender: FDA-Public Use
  Company Number: 163-21880-12120786

PATIENT
  Age: 68 Year
  Sex: Female
  Weight: 71.22 kg

DRUGS (7)
  1. REVLIMID [Suspect]
     Indication: PLASMA CELL MYELOMA
     Dosage: 10 MG, 14 IN 14 D, PO
     Route: 048
     Dates: start: 201107
  2. HYDROCODONE/APAP (VICODIN) (UNKNOWN) [Concomitant]
  3. ALPRAZOLAM (ALPRAZOLAM) (UNKNOWN) (ALPRAZOLAM) [Concomitant]
  4. BROMOCRIPTINE (BROMOCRIPTINE) (UNKNOWN) [Concomitant]
  5. CITALOPRAM (CITALOPRAM) (UNKNOWN) [Concomitant]
  6. LOVASTATIN (LOVASTATIN) (UNKNOWN0 [Concomitant]
  7. RALOXIFENE (RALOXIFENE) (UNKNOWN) [Concomitant]

REACTIONS (1)
  - Pancytopenia [None]
